FAERS Safety Report 4971201-9 (Version None)
Quarter: 2006Q1

REPORT INFORMATION
  Report Type: 
  Country: None (occurrence: None)
  Receive Date: 20060216
  Receipt Date: 20040330
  Transmission Date: 20060701
  Serious: Yes (Other)
  Sender: FDA-Public Use
  Company Number: 2004IM000479

PATIENT
  Age: 61 Year
  Sex: Female
  Weight: 69.8539 kg

DRUGS (7)
  1. INTERFERON GAMMA-1B [Suspect]
     Indication: OVARIAN CANCER
     Dosage: 100 UG, TIW, SUBCUTANEOUS
     Route: 058
     Dates: start: 20020717, end: 20021106
  2. CARBOPLATIN [Suspect]
     Indication: OVARIAN CANCER
     Dosage: 400 MG Q3W, INTRAVENOUS
     Route: 042
     Dates: start: 20020717, end: 20021028
  3. PACLITAXEL [Suspect]
     Indication: OVARIAN CANCER
     Dosage: 315 MG Q3W, INTRAVENOUS
     Route: 042
     Dates: start: 20020717, end: 20021028
  4. VICODIN [Concomitant]
  5. TYLENOL (CAPLET) [Concomitant]
  6. ATIVAN [Concomitant]
  7. PROCRIT [Concomitant]

REACTIONS (1)
  - NEUTROPENIA [None]
